FAERS Safety Report 4696100-1 (Version None)
Quarter: 2005Q2

REPORT INFORMATION
  Report Type: 
  Country: None (occurrence: None)
  Receive Date: 20050620
  Receipt Date: 20050603
  Transmission Date: 20051028
  Serious: Yes (Other)
  Sender: FDA-Public Use
  Company Number: 2005JP001139

PATIENT
  Age: 70 Year
  Sex: Female

DRUGS (3)
  1. FUNGUARD(MICAFUNGIN) INJECTION [Suspect]
     Indication: FUNGAEMIA
     Dosage: 150.00 MG, UID/QD, IV DRIP
     Route: 042
     Dates: start: 20050517, end: 20050531
  2. LOXONIN (LOXOPROFEN SODIUM) [Concomitant]
  3. GASTER D (FAMOTIDINE) TABLET [Concomitant]

REACTIONS (1)
  - TOXIC SKIN ERUPTION [None]
